FAERS Safety Report 9482720 (Version 3)
Quarter: 2013Q4

REPORT INFORMATION
  Report Type: Spontaneous
  Country: JP (occurrence: JP)
  Receive Date: 20130828
  Receipt Date: 20131104
  Transmission Date: 20140711
  Serious: Yes (Hospitalization)
  Sender: FDA-Public Use
  Company Number: JP-EISAI INC-E2020-12796-SPO-JP

PATIENT
  Age: 82 Year
  Sex: Male
  Weight: 63 kg

DRUGS (11)
  1. ARICEPT [Suspect]
     Indication: DEMENTIA ALZHEIMER^S TYPE
     Route: 048
     Dates: end: 20130824
  2. BAYASPIRIN [Concomitant]
     Route: 048
  3. HARNAL D [Concomitant]
     Route: 048
  4. GLACTIV [Concomitant]
     Route: 048
  5. BLOPRESS [Concomitant]
     Route: 048
  6. ADALAT-CR [Concomitant]
     Route: 048
  7. YOKUKANSAN [Concomitant]
     Route: 048
  8. SIGMART [Concomitant]
     Route: 048
     Dates: start: 20130821
  9. NITROPEN [Concomitant]
     Route: 060
  10. HERBESSER R [Concomitant]
     Route: 048
  11. LASIX [Concomitant]
     Route: 048

REACTIONS (2)
  - Long QT syndrome [Recovered/Resolved]
  - Syncope [Recovered/Resolved]
